FAERS Safety Report 6249105-3 (Version None)
Quarter: 2009Q2

REPORT INFORMATION
  Report Type: 
  Country: None (occurrence: None)
  Receive Date: 20090625
  Receipt Date: 20090612
  Transmission Date: 20091009
  Serious: Yes (Hospitalization)
  Sender: FDA-Public Use
  Company Number: 2009-198692-NL

PATIENT
  Age: 79 Year
  Sex: Female

DRUGS (7)
  1. MIRTAZAPINE [Suspect]
     Indication: DEPRESSION
     Dosage: 15 MG/30 MG/15 MG ORAL
     Route: 048
     Dates: start: 20090422, end: 20090428
  2. MIRTAZAPINE [Suspect]
     Indication: DEPRESSION
     Dosage: 15 MG/30 MG/15 MG ORAL
     Route: 048
     Dates: start: 20090429, end: 20090504
  3. MIRTAZAPINE [Suspect]
     Indication: DEPRESSION
     Dosage: 15 MG/30 MG/15 MG ORAL
     Route: 048
     Dates: start: 20090505, end: 20090506
  4. PROPRANOLOL HYDROCHLORIDE [Suspect]
     Indication: HYPERTENSION
     Dosage: 80 MG ORAL
     Route: 048
  5. RIVASTIGMINE TARTRATE [Suspect]
     Dosage: 4.5 MG/3 MG ORAL
     Route: 048
     Dates: start: 20090428, end: 20090428
  6. RIVASTIGMINE TARTRATE [Suspect]
     Dosage: 4.5 MG/3 MG ORAL
     Route: 048
     Dates: start: 20090428, end: 20090430
  7. LEVOTHYROXINE SODIUM [Concomitant]

REACTIONS (1)
  - HYPERTENSION [None]
